FAERS Safety Report 19876780 (Version 1)
Quarter: 2021Q3

REPORT INFORMATION
  Report Type: Spontaneous
  Country: JP (occurrence: JP)
  Receive Date: 20210924
  Receipt Date: 20210924
  Transmission Date: 20211014
  Serious: Yes (Other)
  Sender: FDA-Public Use
  Company Number: JP-TAKEDA-2021TJP095061

PATIENT

DRUGS (1)
  1. BUCCOLAM OROMUCOSAL SOLUTION 5MG [Suspect]
     Active Substance: MIDAZOLAM HYDROCHLORIDE
     Indication: STATUS EPILEPTICUS
     Dosage: 5 MILLIGRAM, PRN
     Route: 050
     Dates: start: 202108

REACTIONS (3)
  - Musculoskeletal stiffness [Unknown]
  - Bradycardia [Recovered/Resolved]
  - Somnolence [Unknown]
